FAERS Safety Report 7149024-4 (Version None)
Quarter: 2010Q4

REPORT INFORMATION
  Report Type: 
  Country: None (occurrence: None)
  Receive Date: 20101209
  Receipt Date: 20101201
  Transmission Date: 20110411
  Serious: Yes (Hospitalization)
  Sender: FDA-Public Use
  Company Number: ES-B.I. PHARMACEUTICALS,INC./RIDGEFIELD-2010-ES-00257ES

PATIENT
  Age: 87 Year
  Sex: Female

DRUGS (4)
  1. MICARDIS HCT [Suspect]
     Indication: HYPERTENSION
     Dosage: STRENGTH 40/12.5; DAILY DOSE : 1DF/DAY
     Dates: start: 20080101, end: 20100611
  2. RANITIDINA [Concomitant]
     Indication: PROPHYLAXIS AGAINST GASTROINTESTINAL ULCER
     Dosage: 150 MG
     Dates: start: 20000101
  3. PRAVASTATINA SODICA [Concomitant]
     Indication: DYSLIPIDAEMIA
     Dates: start: 20000101
  4. ADALAT [Concomitant]
     Indication: HYPERTENSION
     Dosage: 20 MG
     Dates: start: 20000101

REACTIONS (4)
  - ANOREXIA NERVOSA [None]
  - ASTHENIA [None]
  - HYPONATRAEMIA [None]
  - NAUSEA [None]
